FAERS Safety Report 7323334-X (Version None)
Quarter: 2011Q1

REPORT INFORMATION
  Report Type: 
  Country: None (occurrence: None)
  Receive Date: 20110217
  Receipt Date: 20110204
  Transmission Date: 20110831
  Serious: Yes (Death, Other)
  Sender: FDA-Public Use
  Company Number: 2011S1000102

PATIENT
  Age: 63 Year
  Sex: Female

DRUGS (3)
  1. AZATHIOPRINE [Suspect]
     Indication: RHEUMATOID ARTHRITIS
     Dosage: 125 MG;QD;PO
     Route: 048
     Dates: start: 20060511, end: 20060513
  2. ENBREL [Suspect]
     Indication: RHEUMATOID ARTHRITIS
     Dosage: 25 MG;BIW;SC
     Route: 058
     Dates: start: 20030101, end: 20060101
  3. GOLD (GOLD) [Suspect]
     Indication: RHEUMATOID ARTHRITIS
     Dosage: 50 MG;QOW;IM
     Route: 030
     Dates: start: 20071113, end: 20100513

REACTIONS (2)
  - NON-HODGKIN'S LYMPHOMA [None]
  - SMALL INTESTINAL PERFORATION [None]
